FAERS Safety Report 13591016 (Version 1)
Quarter: 2017Q2

REPORT INFORMATION
  Report Type: Spontaneous
  Country: CA (occurrence: CA)
  Receive Date: 20170530
  Receipt Date: 20170530
  Transmission Date: 20170830
  Serious: Yes (Death)
  Sender: FDA-Public Use
  Company Number: CA-PFIZER INC-2017065894

PATIENT
  Age: 34 Year
  Sex: Female

DRUGS (1)
  1. IBRANCE [Suspect]
     Active Substance: PALBOCICLIB
     Indication: BREAST CANCER METASTATIC
     Dosage: 1 DF DAILY, CYCLIC (DAILY,  21 DAYS ON AND 7 DAYS OFF)
     Route: 048
     Dates: start: 20170209

REACTIONS (2)
  - Death [Fatal]
  - Product use in unapproved indication [Unknown]
